FAERS Safety Report 5216630-3 (Version None)
Quarter: 2007Q1

REPORT INFORMATION
  Report Type: 
  Country: None (occurrence: None)
  Receive Date: 20061130
  Receipt Date: 20060628
  Transmission Date: 20070707
  Serious: Yes (Other)
  Sender: FDA-Public Use
  Company Number: US200606006031

PATIENT
  Age: 47 Year
  Sex: Male

DRUGS (1)
  1. ZYPREXA [Suspect]
     Indication: SCHIZOPHRENIA, PARANOID TYPE
     Dosage: 10 MG, DAILY (1/D), ORAL
     Route: 048
     Dates: start: 19990101

REACTIONS (1)
  - BLOOD CREATINE PHOSPHOKINASE INCREASED [None]
